FAERS Safety Report 26172479 (Version 2)
Quarter: 2025Q4

REPORT INFORMATION
  Report Type: Spontaneous
  Country: US (occurrence: US)
  Receive Date: 20251218
  Receipt Date: 20251223
  Transmission Date: 20260117
  Serious: Yes (Other)
  Sender: SANOFI AVENTIS
  Company Number: US-SANOFI-02753941

PATIENT
  Age: 41 Year
  Sex: Female

DRUGS (1)
  1. DUPIXENT [Suspect]
     Active Substance: DUPILUMAB
     Indication: Chronic spontaneous urticaria
     Dosage: 600 MG, 1X
     Dates: start: 20251211, end: 20251211

REACTIONS (7)
  - Acute generalised exanthematous pustulosis [Unknown]
  - Chest pain [Not Recovered/Not Resolved]
  - Gingival pain [Not Recovered/Not Resolved]
  - Joint swelling [Not Recovered/Not Resolved]
  - Walking aid user [Not Recovered/Not Resolved]
  - Dizziness [Unknown]
  - Rash [Unknown]

NARRATIVE: CASE EVENT DATE: 20251201
